FAERS Safety Report 5841759-6 (Version None)
Quarter: 2008Q3

REPORT INFORMATION
  Report Type: 
  Country: None (occurrence: None)
  Receive Date: 20080811
  Receipt Date: 20080811
  Transmission Date: 20090109
  Serious: Yes (Hospitalization)
  Sender: FDA-Public Use
  Company Number: None

PATIENT
  Age: 77 Year
  Sex: Female
  Weight: 85.7298 kg

DRUGS (6)
  1. RISPERDAL [Suspect]
     Indication: MENTAL DISORDER
     Dosage: 4MG  ONCE A DAY  PO
     Route: 048
  2. RISPERDAL [Suspect]
     Indication: MENTAL DISORDER
     Dosage: 1MG ONCE A DAY PO
     Route: 048
  3. LEVOTHYROXINE SODIUM [Concomitant]
  4. GLYBURIDE [Concomitant]
  5. FUROSEMIDE [Concomitant]
  6. POTASSIUM CL [Concomitant]

REACTIONS (8)
  - ASTHMA [None]
  - COUGH [None]
  - HEADACHE [None]
  - NERVOUS SYSTEM DISORDER [None]
  - PAIN [None]
  - PAIN IN EXTREMITY [None]
  - PAIN IN JAW [None]
  - TREMOR [None]
